FAERS Safety Report 8511702-X (Version None)
Quarter: 2012Q3

REPORT INFORMATION
  Report Type: 
  Country: None (occurrence: None)
  Receive Date: 20120716
  Receipt Date: 20120709
  Transmission Date: 20120928
  Serious: Yes (Other)
  Sender: FDA-Public Use
  Company Number: FR-UCBSA-061391

PATIENT
  Sex: Male

DRUGS (2)
  1. CIMZIA [Suspect]
     Indication: RHEUMATOID ARTHRITIS
     Dosage: THREE INDUCTION DOSES
     Route: 058
  2. CORTISONE ACETATE [Concomitant]
     Indication: RHEUMATOID ARTHRITIS
     Dosage: DAILY DOSE: 20 MG

REACTIONS (1)
  - SIGMOIDITIS [None]
